FAERS Safety Report 9653280 (Version 1)
Quarter: 2013Q4

REPORT INFORMATION
  Report Type: Spontaneous
  Country: None (occurrence: None)
  Receive Date: 20131028
  Receipt Date: 20131028
  Transmission Date: 20140711
  Serious: Yes (Disabling)
  Sender: FDA-Public Use
  Company Number: None

PATIENT
  Age: 39 Year
  Sex: Female
  Weight: 86.18 kg

DRUGS (1)
  1. MARVELON 21 [Suspect]
     Indication: BLOOD IRON DECREASED
     Dosage: 1 PILL ONCE DAILY
     Route: 048
     Dates: start: 20120316, end: 20120416

REACTIONS (7)
  - Hypoaesthesia [None]
  - Hypoaesthesia [None]
  - Pain [None]
  - Visual impairment [None]
  - Vision blurred [None]
  - Tunnel vision [None]
  - Eye pain [None]
